FAERS Safety Report 8361497-8 (Version None)
Quarter: 2012Q2

REPORT INFORMATION
  Report Type: 
  Country: None (occurrence: None)
  Receive Date: 20120515
  Receipt Date: 20120511
  Transmission Date: 20120825
  Serious: Yes (Hospitalization)
  Sender: FDA-Public Use
  Company Number: FR-AMGEN-FRANI2012016416

PATIENT
  Age: 33 Year
  Sex: Female

DRUGS (7)
  1. ROMIPLOSTIM [Suspect]
     Indication: IDIOPATHIC THROMBOCYTOPENIC PURPURA
     Dosage: 5 MUG/KG, UNK
  2. PRIVIGEN [Concomitant]
     Indication: THROMBOCYTOPENIA
     Dosage: UNK
     Dates: start: 20111004, end: 20120131
  3. PHLOROGLUCINOL [Concomitant]
     Dosage: UNK
  4. FONDAPARINUX SODIUM [Concomitant]
     Dosage: 2.5 MG, QD
  5. NICOTINE [Concomitant]
     Dosage: 21 MG, QD
  6. ACETAMINOPHEN [Concomitant]
     Dosage: 1 G, TID
  7. OFLOXACIN [Concomitant]
     Dosage: 200 MG, BID

REACTIONS (1)
  - RENAL VEIN THROMBOSIS [None]
